FAERS Safety Report 5765602-9 (Version None)
Quarter: 2008Q2

REPORT INFORMATION
  Report Type: 
  Country: None (occurrence: None)
  Receive Date: 20080605
  Receipt Date: 20080521
  Transmission Date: 20081010
  Serious: Yes (Hospitalization)
  Sender: FDA-Public Use
  Company Number: E2090-00460-SPO-JP

PATIENT
  Age: 70 Year
  Sex: Male

DRUGS (14)
  1. ZONISAMIDE [Suspect]
     Indication: CONVULSION
     Dosage: 200 MG, ORAL
     Route: 048
     Dates: start: 20080403, end: 20080511
  2. AMLODIPINE BESYLATE [Concomitant]
  3. CANDESARTAN CILEXETIL [Concomitant]
  4. GASMOTIN (MOSAPRIDE CITRATE) [Concomitant]
  5. AMOBAN (ZOPICLONE) [Concomitant]
  6. BASEN (VOGLIBOSE) [Concomitant]
  7. LIPITOR [Concomitant]
  8. AMARYL [Concomitant]
  9. METFORMIN HYDROCHLORIDE [Concomitant]
  10. TRANSAMIN (TRANEXAMIC ACID) [Concomitant]
  11. INSULIN (INSULIN) [Concomitant]
  12. PREDONISOLONE SODIUM SUCCINATE [Concomitant]
  13. METHYLPREDONISOLONE (METHYLPREDNISOLONE) [Concomitant]
  14. PREDONINE (PREDNISOLONE) [Concomitant]

REACTIONS (9)
  - ANOREXIA [None]
  - DEHYDRATION [None]
  - DERMATITIS EXFOLIATIVE [None]
  - DIARRHOEA [None]
  - EOSINOPHILIA [None]
  - FEEDING DISORDER [None]
  - HEPATIC FUNCTION ABNORMAL [None]
  - HYPERGLYCAEMIA [None]
  - RENAL IMPAIRMENT [None]
